FAERS Safety Report 10236087 (Version 1)
Quarter: 2014Q2

REPORT INFORMATION
  Report Type: Other
  Country: US (occurrence: US)
  Receive Date: 20140613
  Receipt Date: 20140613
  Transmission Date: 20141212
  Serious: Yes (Life-Threatening, Disabling)
  Sender: FDA-Public Use
  Company Number: US-ENDO PHARMACEUTICALS INC.-FORT20140134

PATIENT
  Sex: Male

DRUGS (1)
  1. FORTESTA [Suspect]
     Indication: BLOOD TESTOSTERONE DECREASED
     Dosage: UNKNOWN
     Route: 061
     Dates: start: 2004, end: 201310

REACTIONS (1)
  - Cerebrovascular accident [Not Recovered/Not Resolved]
